FAERS Safety Report 16211625 (Version 6)
Quarter: 2019Q4

REPORT INFORMATION
  Report Type: Spontaneous
  Country: HU (occurrence: HU)
  Receive Date: 20190418
  Receipt Date: 20191001
  Transmission Date: 20200122
  Serious: Yes (Hospitalization, Other)
  Sender: FDA-Public Use
  Company Number: HU-009507513-1904HUN004018

PATIENT
  Age: 52 Year
  Sex: Male

DRUGS (9)
  1. QUETIAPINE FUMARATE. [Suspect]
     Active Substance: QUETIAPINE FUMARATE
     Indication: PRODUCT USED FOR UNKNOWN INDICATION
     Dosage: DOSAGE FORM: UNSPECIFIED
     Route: 065
     Dates: start: 2017
  2. BIPERIDEN [Suspect]
     Active Substance: BIPERIDEN
     Indication: PRODUCT USED FOR UNKNOWN INDICATION
     Dosage: DOSAGE FORM: UNSPECIFIED
     Route: 065
     Dates: start: 2017
  3. HALOPERIDOL. [Suspect]
     Active Substance: HALOPERIDOL
     Route: 065
  4. RIVOTRIL [Suspect]
     Active Substance: CLONAZEPAM
     Indication: PRODUCT USED FOR UNKNOWN INDICATION
     Dosage: DOSAGE FORM: UNSPECIFIED
     Route: 065
     Dates: start: 2017
  5. MIRTAZAPINE. [Suspect]
     Active Substance: MIRTAZAPINE
     Indication: PRODUCT USED FOR UNKNOWN INDICATION
     Dosage: UNK
     Route: 065
     Dates: start: 2017
  6. RIVOTRIL [Suspect]
     Active Substance: CLONAZEPAM
     Dosage: DOSE WAS INCREASED
     Dates: start: 20170817
  7. PALIPERIDONE. [Suspect]
     Active Substance: PALIPERIDONE
     Indication: SCHIZOPHRENIA
     Dosage: UNK, DOSAGE FORM: OROS (ORAL OSMOTIC) THERAPEUTIC SYSTEM TABLET
     Route: 048
     Dates: start: 2017
  8. BIPERIDEN [Suspect]
     Active Substance: BIPERIDEN
     Route: 065
  9. HALOPERIDOL. [Suspect]
     Active Substance: HALOPERIDOL
     Indication: PRODUCT USED FOR UNKNOWN INDICATION
     Dosage: DOSAGE FORM: UNSPECIFIED
     Route: 065
     Dates: start: 2017

REACTIONS (6)
  - Thoracic vertebral fracture [Recovered/Resolved]
  - Lumbar vertebral fracture [Recovered/Resolved]
  - Fall [Recovered/Resolved]
  - Hyponatraemia [Recovered/Resolved]
  - Paraparesis [Recovered/Resolved]
  - Spinal compression fracture [Recovered/Resolved]

NARRATIVE: CASE EVENT DATE: 2017
